FAERS Safety Report 13269256 (Version 1)
Quarter: 2017Q1

REPORT INFORMATION
  Report Type: Spontaneous
  Country: US (occurrence: US)
  Receive Date: 20170224
  Receipt Date: 20170224
  Transmission Date: 20170428
  Serious: No
  Sender: FDA-Public Use
  Company Number: US-PFIZER INC-3264648

PATIENT
  Age: 25 Year
  Sex: Female

DRUGS (1)
  1. PROPOFOL. [Suspect]
     Active Substance: PROPOFOL
     Indication: TOOTH EXTRACTION
     Dosage: ONCE
     Route: 042
     Dates: start: 20160421, end: 20160421

REACTIONS (3)
  - No adverse event [Recovered/Resolved]
  - Product contamination physical [Recovered/Resolved]
  - Poor quality drug administered [Recovered/Resolved]

NARRATIVE: CASE EVENT DATE: 20160421
